FAERS Safety Report 8510947-2 (Version None)
Quarter: 2012Q3

REPORT INFORMATION
  Report Type: 
  Country: None (occurrence: None)
  Receive Date: 20120716
  Receipt Date: 20120706
  Transmission Date: 20120928
  Serious: Yes (Hospitalization)
  Sender: FDA-Public Use
  Company Number: US-BAYER-2012-023820

PATIENT
  Age: 28 Year
  Sex: Female

DRUGS (8)
  1. ALBUTEROL SULFATE [Concomitant]
     Dosage: 90MCG INHALER FOUR TIMES DAILY
     Route: 045
     Dates: start: 20080902
  2. TRETINOIN [Concomitant]
     Dosage: UNK
     Dates: start: 20080902
  3. OXYCODONE HCL AND ACETAMINOPHEN [Concomitant]
     Dosage: ONE TAB EVERY 8 HOURS
     Dates: start: 20080902
  4. DROSPIRENONE AND ETHINYL ESTRADIOL [Suspect]
     Dosage: UNK
     Dates: start: 20080201, end: 20081217
  5. YASMIN [Suspect]
     Dosage: UNK
     Dates: start: 20080201, end: 20081217
  6. LIDODERM [Concomitant]
     Dosage: UNK
     Dates: start: 20080807
  7. DICLOFENAC [Concomitant]
     Dosage: 50 MG, BID
     Dates: start: 20080902
  8. LORAZEPAM [Concomitant]
     Dosage: 1 MG, UNK
     Dates: start: 20080808

REACTIONS (8)
  - PAIN IN EXTREMITY [None]
  - ASTHENIA [None]
  - FEAR OF PREGNANCY [None]
  - PANIC ATTACK [None]
  - ANXIETY [None]
  - DEEP VEIN THROMBOSIS [None]
  - GAIT DISTURBANCE [None]
  - STRESS [None]
